FAERS Safety Report 7690875-5 (Version None)
Quarter: 2011Q3

REPORT INFORMATION
  Report Type: 
  Country: None (occurrence: None)
  Receive Date: 20110818
  Receipt Date: 20110818
  Transmission Date: 20111222
  Serious: No
  Sender: FDA-Public Use
  Company Number: None

PATIENT
  Age: 46 Year
  Sex: Female
  Weight: 106.59 kg

DRUGS (2)
  1. ZETIA [Suspect]
     Indication: BLOOD CHOLESTEROL INCREASED
     Dosage: 10 MG
     Route: 048
     Dates: start: 20110215, end: 20110507
  2. ZETIA [Suspect]
     Indication: BLOOD TRIGLYCERIDES INCREASED
     Dosage: 10 MG
     Route: 048
     Dates: start: 20110215, end: 20110507

REACTIONS (3)
  - ARTHRALGIA [None]
  - TRIGGER FINGER [None]
  - MUSCULOSKELETAL STIFFNESS [None]
